FAERS Safety Report 15591963 (Version 3)
Quarter: 2018Q4

REPORT INFORMATION
  Report Type: Spontaneous
  Country: TN (occurrence: TN)
  Receive Date: 20181107
  Receipt Date: 20181116
  Transmission Date: 20190205
  Serious: Yes (Other)
  Sender: FDA-Public Use
  Company Number: TN-PFIZER INC-2018455698

PATIENT
  Age: 55 Year
  Sex: Female

DRUGS (2)
  1. NIFLUMIC ACID [Suspect]
     Active Substance: NIFLUMIC ACID
     Indication: ANGINA PECTORIS
     Dosage: UNK
     Dates: start: 2017
  2. PIROXICAM. [Suspect]
     Active Substance: PIROXICAM
     Indication: ANGINA PECTORIS
     Dosage: UNK
     Dates: start: 2017

REACTIONS (2)
  - Hypersensitivity vasculitis [Recovering/Resolving]
  - Product use in unapproved indication [Unknown]

NARRATIVE: CASE EVENT DATE: 201703
